FAERS Safety Report 5475124-0 (Version None)
Quarter: 2007Q4

REPORT INFORMATION
  Report Type: 
  Country: None (occurrence: None)
  Receive Date: 20071002
  Receipt Date: 20070927
  Transmission Date: 20080405
  Serious: Yes (Disabling)
  Sender: FDA-Public Use
  Company Number: US-BOEHRINGER INGELHEIM PHARMACEUTICALS, INC.-2007-BP-16870BP

PATIENT
  Age: 88 Year
  Sex: Male

DRUGS (11)
  1. FLOMAX [Suspect]
     Indication: BENIGN PROSTATIC HYPERPLASIA
     Route: 048
     Dates: start: 20020401
  2. FLOMAX [Suspect]
     Indication: POLLAKIURIA
  3. FLOMAX [Suspect]
     Indication: NOCTURIA
  4. BP MEDS [Concomitant]
  5. ACCUPRIL [Concomitant]
  6. M.V.I. [Concomitant]
  7. ASPIRIN [Concomitant]
  8. ALAVERT [Concomitant]
  9. HYDROCHLOROTHIAZIDE [Concomitant]
  10. RHINOCORT [Concomitant]
  11. XANAX [Concomitant]

REACTIONS (6)
  - CATARACT OPERATION [None]
  - EYE DISORDER [None]
  - IRIDOCELE [None]
  - IRIS DISORDER [None]
  - IRIS INJURY [None]
  - PHOTOPHOBIA [None]
